FAERS Safety Report 11928270 (Version 9)
Quarter: 2017Q4

REPORT INFORMATION
  Report Type: Report from Study
  Country: JP (occurrence: JP)
  Receive Date: 20160119
  Receipt Date: 20171107
  Transmission Date: 20180320
  Serious: Yes (Hospitalization, Other)
  Sender: FDA-Public Use
  Company Number: JP-INCYTE CORPORATION-2015IN004952

PATIENT

DRUGS (20)
  1. LEVOFLOXACIN (NGX) [Suspect]
     Active Substance: LEVOFLOXACIN
     Indication: BRONCHITIS
     Dosage: 400 MG, QD
     Route: 048
     Dates: start: 20151105, end: 20151112
  2. ISOTONIC SODIUM CHLORIDE SOLUTION [Concomitant]
     Active Substance: SODIUM CHLORIDE
     Indication: PRODUCT USED FOR UNKNOWN INDICATION
     Dosage: UNK
  3. LEVOFLOXACIN (NGX) [Suspect]
     Active Substance: LEVOFLOXACIN
     Indication: INFECTION
     Dosage: 400 MG, QD
     Route: 048
     Dates: start: 20150721, end: 20150728
  4. ROCEPHIN [Suspect]
     Active Substance: CEFTRIAXONE SODIUM
     Indication: BRONCHITIS
     Dosage: 1 G, QD
     Route: 065
     Dates: start: 20151105, end: 20151109
  5. ZOMETA [Concomitant]
     Active Substance: ZOLEDRONIC ACID
     Indication: PRIMARY MYELOFIBROSIS
     Dosage: 4 MG, QMO
     Route: 041
     Dates: start: 20120329
  6. ISOTONIC SODIUM CHLORIDE SOLUTION [Concomitant]
     Active Substance: SODIUM CHLORIDE
     Dosage: 100 ML, QMO
     Route: 065
  7. FOSFOMYCIN [Suspect]
     Active Substance: FOSFOMYCIN
     Indication: BRONCHITIS
  8. FOSFOMYCIN [Suspect]
     Active Substance: FOSFOMYCIN
     Indication: BRONCHITIS
     Dosage: 1 G, QD
     Route: 065
     Dates: start: 20151105, end: 20151109
  9. ROCEPHIN [Suspect]
     Active Substance: CEFTRIAXONE SODIUM
     Indication: INFECTION
     Dosage: 1 G, QD
     Route: 065
     Dates: start: 20150721, end: 20150725
  10. JAKAVI [Suspect]
     Active Substance: RUXOLITINIB
     Indication: PRIMARY MYELOFIBROSIS
     Dosage: 5 MG, BID
     Route: 048
     Dates: start: 20150228
  11. ISOTONIC SODIUM CHLORIDE SOLUTION [Concomitant]
     Active Substance: SODIUM CHLORIDE
     Dosage: 100 ML, QMO
     Route: 065
  12. ISOTONIC SODIUM CHLORIDE SOLUTION [Concomitant]
     Active Substance: SODIUM CHLORIDE
     Dosage: 100 ML, QMO
     Route: 065
  13. ISOTONIC SODIUM CHLORIDE SOLUTION [Concomitant]
     Active Substance: SODIUM CHLORIDE
     Dosage: 100 ML, QMO
     Route: 065
  14. FOSFOMYCIN [Suspect]
     Active Substance: FOSFOMYCIN
     Indication: INFECTION
     Dosage: 1 G, QD
     Route: 065
     Dates: start: 20150721, end: 20150725
  15. ISOTONIC SODIUM CHLORIDE SOLUTION [Concomitant]
     Active Substance: SODIUM CHLORIDE
     Dosage: 100 ML, QMO
     Route: 065
  16. ISOTONIC SODIUM CHLORIDE SOLUTION [Concomitant]
     Active Substance: SODIUM CHLORIDE
     Dosage: 100 ML, QMO
     Route: 065
  17. PRIMOBOLAN-DEPOT [Concomitant]
     Active Substance: METHENOLONE ENANTHATE
     Indication: PRIMARY MYELOFIBROSIS
     Dosage: 20 MG, UNK
     Route: 048
     Dates: start: 20100617
  18. ISOTONIC SODIUM CHLORIDE SOLUTION [Concomitant]
     Active Substance: SODIUM CHLORIDE
     Dosage: 100 ML, QMO
     Route: 065
  19. ROCEPHIN [Suspect]
     Active Substance: CEFTRIAXONE SODIUM
     Indication: BRONCHITIS
  20. ISOTONIC SODIUM CHLORIDE SOLUTION [Concomitant]
     Active Substance: SODIUM CHLORIDE
     Dosage: 100 ML, QMO
     Route: 065

REACTIONS (20)
  - Hepatic function abnormal [Recovered/Resolved]
  - Cholangitis [Unknown]
  - Herpes zoster [Recovered/Resolved]
  - Differential white blood cell count abnormal [Recovering/Resolving]
  - Bronchitis moraxella [Recovered/Resolved]
  - Iron deficiency anaemia [Recovering/Resolving]
  - Hepatic function abnormal [Recovered/Resolved]
  - Hepatic function abnormal [Recovered/Resolved]
  - Bronchitis [Recovering/Resolving]
  - Bronchitis [Recovered/Resolved]
  - Oral herpes [Recovering/Resolving]
  - Neutrophil count decreased [Recovering/Resolving]
  - Hepatic function abnormal [Unknown]
  - Gastric polyps [Recovered/Resolved]
  - Haemorrhage subcutaneous [Recovered/Resolved]
  - Bile duct stone [Unknown]
  - Hepatic function abnormal [Recovered/Resolved]
  - Pyrexia [Unknown]
  - Atrial fibrillation [Unknown]
  - Decreased appetite [Unknown]

NARRATIVE: CASE EVENT DATE: 20150719
